FAERS Safety Report 4433735-5 (Version None)
Quarter: 2004Q3

REPORT INFORMATION
  Report Type: 
  Country: None (occurrence: None)
  Receive Date: 20040826
  Receipt Date: 20040818
  Transmission Date: 20050211
  Serious: Yes (Life-Threatening)
  Sender: FDA-Public Use
  Company Number: US-MERCK-0408USA01517

PATIENT
  Age: 58 Year
  Sex: Female

DRUGS (3)
  1. FOSAMAX [Suspect]
     Indication: OSTEOPOROSIS
     Route: 048
     Dates: start: 19970101
  2. CALCIUM (UNSPECIFIED) [Concomitant]
     Route: 065
  3. VITAMIN E [Concomitant]
     Route: 065

REACTIONS (4)
  - GINGIVAL BLEEDING [None]
  - GINGIVAL SWELLING [None]
  - OVERDOSE [None]
  - POLYCYTHAEMIA VERA [None]
